FAERS Safety Report 19013158 (Version 2)
Quarter: 2021Q1

REPORT INFORMATION
  Report Type: Report from Study
  Country: CH (occurrence: CH)
  Receive Date: 20210316
  Receipt Date: 20210319
  Transmission Date: 20210420
  Serious: Yes (Hospitalization)
  Sender: FDA-Public Use
  Company Number: CH-ROCHE-2787994

PATIENT
  Age: 86 Year

DRUGS (2)
  1. BLINDED IBRUTINIB/PLACEBO [Suspect]
     Active Substance: IBRUTINIB
     Indication: B-CELL LYMPHOMA
     Dosage: DATE OF MOST RECENT DOSE ADMINISTERED PRIOR TO SAE: 10/FEB/2021
     Route: 048
     Dates: start: 20190214
  2. RITUXIMAB. [Suspect]
     Active Substance: RITUXIMAB
     Indication: B-CELL LYMPHOMA
     Dosage: DATE OF MOST RECENT DOSE ADMINISTERED PRIOR TO SAE: 27/JAN/2021
     Route: 058
     Dates: start: 20190227

REACTIONS (1)
  - Skin infection [Recovered/Resolved with Sequelae]

NARRATIVE: CASE EVENT DATE: 20210305
